FAERS Safety Report 8957439 (Version 1)
Quarter: 2012Q4

REPORT INFORMATION
  Report Type: Spontaneous
  Country: US (occurrence: None)
  Receive Date: 20121205
  Receipt Date: 20121205
  Transmission Date: 20130627
  Serious: Yes (Other)
  Sender: FDA-Public Use
  Company Number: None

PATIENT
  Age: 51 Year
  Sex: Female
  Weight: 95.26 kg

DRUGS (2)
  1. METFORMIN HCL [Suspect]
     Indication: BLOOD GLUCOSE INCREASED
     Route: 048
  2. METFORMIN HCL [Suspect]
     Indication: STEROID THERAPY NOS
     Route: 048

REACTIONS (18)
  - Surgery [None]
  - Personality change [None]
  - Irritability [None]
  - Frustration [None]
  - Anger [None]
  - Feeling abnormal [None]
  - Depression [None]
  - Asthenia [None]
  - Malaise [None]
  - Dry skin [None]
  - Hair texture abnormal [None]
  - Activities of daily living impaired [None]
  - Skin disorder [None]
  - Diarrhoea [None]
  - Muscle spasms [None]
  - Nausea [None]
  - Dehydration [None]
  - Hormone level abnormal [None]
